FAERS Safety Report 10128706 (Version 1)
Quarter: 2014Q2

REPORT INFORMATION
  Report Type: Spontaneous
  Country: FR (occurrence: FR)
  Receive Date: 20140428
  Receipt Date: 20140428
  Transmission Date: 20141212
  Serious: Yes (Hospitalization)
  Sender: FDA-Public Use
  Company Number: FR-JNJFOC-20140415280

PATIENT
  Age: 75 Year
  Sex: Male

DRUGS (5)
  1. XARELTO [Suspect]
     Indication: PRODUCT USED FOR UNKNOWN INDICATION
     Route: 048
     Dates: start: 20140304, end: 20140329
  2. INEXIUM [Concomitant]
     Route: 065
  3. XATRAL SR [Concomitant]
     Route: 065
  4. RAMIPRIL [Concomitant]
     Route: 065
  5. BISOPROLOL [Concomitant]
     Route: 065

REACTIONS (1)
  - Ischaemia [Unknown]
